FAERS Safety Report 10796648 (Version 2)
Quarter: 2015Q2

REPORT INFORMATION
  Report Type: Spontaneous
  Country: US (occurrence: US)
  Receive Date: 20150216
  Receipt Date: 20150526
  Transmission Date: 20150821
  Serious: Yes (Death, Hospitalization, Other)
  Sender: FDA-Public Use
  Company Number: US-AMGEN-USASP2015012469

PATIENT
  Age: 43 Year
  Sex: Female

DRUGS (5)
  1. EFAVIRENZ [Concomitant]
     Active Substance: EFAVIRENZ
  2. PROMACTA [Suspect]
     Active Substance: ELTROMBOPAG OLAMINE
     Indication: IMMUNE THROMBOCYTOPENIC PURPURA
     Dosage: 50 MG, UNK
     Route: 065
  3. NPLATE [Suspect]
     Active Substance: ROMIPLOSTIM
     Indication: IMMUNE THROMBOCYTOPENIC PURPURA
     Dosage: 1 MUG/KG, QWK
     Route: 065
  4. TENOFOVIR [Concomitant]
     Active Substance: TENOFOVIR
     Indication: HIV INFECTION
  5. ATRIPLA [Concomitant]
     Active Substance: EFAVIRENZ\EMTRICITABINE\TENOFOVIR DISOPROXIL FUMARATE

REACTIONS (6)
  - Therapeutic response decreased [Unknown]
  - Myocardial infarction [Fatal]
  - Electrocardiogram ST segment elevation [Unknown]
  - Chest pain [Unknown]
  - Coronary artery stenosis [Unknown]
  - Myocardial necrosis marker increased [Unknown]
